FAERS Safety Report 23316106 (Version 1)
Quarter: 2023Q4

REPORT INFORMATION
  Report Type: Spontaneous
  Country: CN (occurrence: CN)
  Receive Date: 20231219
  Receipt Date: 20231219
  Transmission Date: 20240110
  Serious: Yes (Other)
  Sender: FDA-Public Use
  Company Number: CN-Merck Healthcare KGaA-2023493948

PATIENT
  Age: 52 Year
  Sex: Male
  Weight: 60 kg

DRUGS (5)
  1. ERBITUX [Suspect]
     Active Substance: CETUXIMAB
     Indication: Colon cancer
     Dosage: 800 MG, UNKNOWN
     Route: 041
     Dates: start: 20231108
  2. IRINOTECAN HYDROCHLORIDE [Suspect]
     Active Substance: IRINOTECAN HYDROCHLORIDE
     Indication: Colon cancer
     Dosage: 180 MG, DAILY
     Route: 041
     Dates: start: 20231108, end: 20231108
  3. CISPLATIN [Suspect]
     Active Substance: CISPLATIN
     Indication: Colon cancer
     Dosage: 30 MG, DAILY
     Route: 041
     Dates: start: 20231108, end: 20231110
  4. SODIUM CHLORIDE [Concomitant]
     Active Substance: SODIUM CHLORIDE
     Indication: Medication dilution
     Dosage: 250 ML, OTHER (0.5)
     Route: 041
     Dates: start: 20231108, end: 20231108
  5. SODIUM CHLORIDE [Concomitant]
     Active Substance: SODIUM CHLORIDE
     Dosage: 500 MG, DAILY
     Route: 041
     Dates: start: 20231108, end: 20231110

REACTIONS (2)
  - Neutrophil count decreased [Recovering/Resolving]
  - White blood cell count decreased [Recovering/Resolving]

NARRATIVE: CASE EVENT DATE: 20231128
